FAERS Safety Report 13733899 (Version 10)
Quarter: 2018Q3

REPORT INFORMATION
  Report Type: Spontaneous
  Country: US (occurrence: US)
  Receive Date: 20170707
  Receipt Date: 20180730
  Transmission Date: 20181010
  Serious: Yes (Hospitalization, Other)
  Sender: FDA-Public Use
  Company Number: US-ABBVIE-17P-163-2028649-00

PATIENT
  Sex: Female

DRUGS (1)
  1. CREON [Suspect]
     Active Substance: PANCRELIPASE AMYLASE\PANCRELIPASE LIPASE\PANCRELIPASE PROTEASE
     Indication: PRODUCT USED FOR UNKNOWN INDICATION
     Route: 048

REACTIONS (15)
  - Abdominal pain upper [Unknown]
  - Dysgeusia [Unknown]
  - Neck pain [Unknown]
  - Pain [Unknown]
  - Small intestinal obstruction [Unknown]
  - Surgery [Unknown]
  - Pancreatitis acute [Unknown]
  - Arthralgia [Unknown]
  - Abdominal pain [Unknown]
  - Product use complaint [Unknown]
  - Nausea [Not Recovered/Not Resolved]
  - Abdominal pain [Not Recovered/Not Resolved]
  - Vomiting [Not Recovered/Not Resolved]
  - Musculoskeletal pain [Unknown]
  - Constipation [Unknown]

NARRATIVE: CASE EVENT DATE: 2017
